FAERS Safety Report 8357551-7 (Version None)
Quarter: 2012Q2

REPORT INFORMATION
  Report Type: 
  Country: None (occurrence: None)
  Receive Date: 20120511
  Receipt Date: 20120502
  Transmission Date: 20120825
  Serious: Yes (Other)
  Sender: FDA-Public Use
  Company Number: 2012MA005676

PATIENT
  Age: 18 Year
  Sex: Male

DRUGS (1)
  1. CITALOPRAM HYDROBROMIDE TABLET, 10 MG (PUREPAC) (CITALOPRAM HYDROBROMI [Suspect]
     Indication: DEPRESSION
     Dosage: 10 MG;	;PO
     Route: 048
     Dates: start: 20120328, end: 20120402

REACTIONS (1)
  - TIC [None]
